FAERS Safety Report 8815560 (Version 2)
Quarter: 2012Q4

REPORT INFORMATION
  Report Type: 
  Country: NL (occurrence: NL)
  Receive Date: 20120928
  Receipt Date: 20121105
  Transmission Date: 20130627
  Serious: Yes (Hospitalization)
  Sender: FDA-Public Use
  Company Number: PHHO2012NL013192

PATIENT
  Age: 44 Year
  Sex: Female
  Weight: 72.6 kg

DRUGS (9)
  1. FLUOROURACIL [Suspect]
     Indication: BREAST CANCER
     Dosage: 955 mg, UNK
     Route: 042
     Dates: start: 20110427, end: 20110608
  2. NO TREATMENT RECEIVED [Suspect]
     Indication: BREAST CANCER
     Dosage: No treatment received
  3. TAXOTERE [Suspect]
     Indication: BREAST CANCER
     Dosage: 191 mg, UNK
     Route: 042
     Dates: start: 20110629
  4. FAMORUBICIN [Concomitant]
     Indication: BREAST CANCER
     Dosage: 191 mg, UNK
     Route: 042
     Dates: start: 20110427, end: 20110608
  5. ENDOXAN [Concomitant]
     Indication: BREAST CANCER
     Dosage: 955 mg, UNK
     Route: 042
     Dates: start: 20110427, end: 20110608
  6. GRANISETRON [Concomitant]
     Indication: PROPHYLAXIS
     Dosage: 2 mg at the same day ^ofteno^
     Route: 048
     Dates: start: 20110427, end: 20110629
  7. DEXAMETHASONE [Concomitant]
     Indication: PROPHYLAXIS
     Dosage: 6 mg, daily
     Route: 048
     Dates: start: 20110427, end: 20110629
  8. PARACETAMOL [Concomitant]
     Indication: PAIN
     Dosage: 1000 mg, uXD
     Route: 048
  9. LIDOCAINE [Concomitant]
     Indication: GLOSSODYNIA
     Route: 048

REACTIONS (1)
  - Urinary tract infection [Recovered/Resolved]
